FAERS Safety Report 7465418-1 (Version None)
Quarter: 2011Q2

REPORT INFORMATION
  Report Type: 
  Country: None (occurrence: None)
  Receive Date: 20110509
  Receipt Date: 20110107
  Transmission Date: 20111010
  Serious: No
  Sender: FDA-Public Use
  Company Number: US-BAUSCH-2011BL000124

PATIENT
  Age: 55 Year
  Sex: Female

DRUGS (1)
  1. LOTEMAX [Suspect]
     Indication: EYE INFLAMMATION
     Route: 047
     Dates: start: 20110106, end: 20110107

REACTIONS (2)
  - HEAD DISCOMFORT [None]
  - PARAESTHESIA [None]
